FAERS Safety Report 25046968 (Version 1)
Quarter: 2025Q1

REPORT INFORMATION
  Report Type: Spontaneous
  Country: US (occurrence: US)
  Receive Date: 20250306
  Receipt Date: 20250306
  Transmission Date: 20250409
  Serious: Yes (Other)
  Sender: GILEAD
  Company Number: US-GILEAD-2025-0706148

PATIENT
  Age: 49 Year
  Sex: Male

DRUGS (1)
  1. YESCARTA [Suspect]
     Active Substance: AXICABTAGENE CILOLEUCEL
     Indication: B-cell lymphoma
     Route: 065

REACTIONS (2)
  - Thrombocytopenia [Unknown]
  - Anaemia [Unknown]
